FAERS Safety Report 7578152-4 (Version None)
Quarter: 2011Q2

REPORT INFORMATION
  Report Type: 
  Country: None (occurrence: None)
  Receive Date: 20110628
  Receipt Date: 20110125
  Transmission Date: 20111010
  Serious: Yes (Hospitalization)
  Sender: FDA-Public Use
  Company Number: A0910435A

PATIENT
  Age: 57 Year
  Sex: Male

DRUGS (1)
  1. AVANDIA [Suspect]
     Indication: DIABETES MELLITUS
     Dosage: 8MG PER DAY
     Route: 048
     Dates: end: 20080101

REACTIONS (5)
  - VASCULAR GRAFT [None]
  - CARDIAC FAILURE CONGESTIVE [None]
  - HYPERCOAGULATION [None]
  - GAIT DISTURBANCE [None]
  - FLUID RETENTION [None]
